FAERS Safety Report 24468440 (Version 1)
Quarter: 2024Q4

REPORT INFORMATION
  Report Type: Spontaneous
  Country: US (occurrence: US)
  Receive Date: 20241018
  Receipt Date: 20241018
  Transmission Date: 20250114
  Serious: No
  Sender: PFIZER
  Company Number: US-PFIZER INC-202400278569

PATIENT
  Age: 71 Year
  Sex: Female
  Weight: 87.54 kg

DRUGS (1)
  1. TIKOSYN [Suspect]
     Active Substance: DOFETILIDE
     Indication: Atrial fibrillation
     Dosage: 250 UG EVERY 12 HOURS
     Route: 048
     Dates: start: 20200810, end: 20241016

REACTIONS (1)
  - Glomerular filtration rate decreased [Unknown]
